FAERS Safety Report 6164417-X (Version None)
Quarter: 2009Q2

REPORT INFORMATION
  Report Type: 
  Country: None (occurrence: None)
  Receive Date: 20090421
  Receipt Date: 20090407
  Transmission Date: 20091009
  Serious: Yes (Other)
  Sender: FDA-Public Use
  Company Number: 232952K08USA

PATIENT
  Age: 55 Year
  Sex: Male
  Weight: 78 kg

DRUGS (9)
  1. REBIF [Suspect]
     Indication: MULTIPLE SCLEROSIS
     Dosage: 44 MCG, 3 IN 1 WEEKS, SUBCUTANEOUS
     Route: 058
     Dates: start: 20080409, end: 20090101
  2. DILANTIN (PHENYTOIN /00017401/) [Concomitant]
  3. TEGRETOL [Concomitant]
  4. PHENOBARBITAL (PHENOBARBITAL /00023201/) [Concomitant]
  5. PREVACID [Concomitant]
  6. CELEXA [Concomitant]
  7. CALCIUM/VITAMIN D (CALCIUM WITH VITAMIN D) [Concomitant]
  8. PERFOVISION WITH LUTEIN (ALL OTHER THERAPEUTIC PRODUCTS) [Concomitant]
  9. NITROGLYCERIN (GYLCERYL TRINITRATE) [Concomitant]

REACTIONS (6)
  - ABDOMINAL PAIN [None]
  - CONDITION AGGRAVATED [None]
  - HEPATIC CIRRHOSIS [None]
  - HEPATIC FAILURE [None]
  - HEPATOMEGALY [None]
  - MASS [None]
